FAERS Safety Report 18811758 (Version 2)
Quarter: 2021Q2

REPORT INFORMATION
  Report Type: Spontaneous
  Country: US (occurrence: US)
  Receive Date: 20210129
  Receipt Date: 20210513
  Transmission Date: 20210717
  Serious: Yes (Other)
  Sender: FDA-Public Use
  Company Number: US-TEVA-2021-US-1873515

PATIENT

DRUGS (1)
  1. AMLODIPINE/VALSARTAN AUROBINDO PHARMA [Suspect]
     Active Substance: AMLODIPINE\VALSARTAN
     Indication: HYPERTENSION
     Dosage: DOSAGE: 10/160MG
     Route: 065
     Dates: start: 20171101, end: 20190118

REACTIONS (2)
  - Pancreatic carcinoma [Unknown]
  - Hepatic cancer [Unknown]
